FAERS Safety Report 26114409 (Version 1)
Quarter: 2025Q4

REPORT INFORMATION
  Report Type: Spontaneous
  Country: US (occurrence: US)
  Receive Date: 20251202
  Receipt Date: 20251202
  Transmission Date: 20260118
  Serious: Yes (Other)
  Sender: NOVO NORDISK
  Company Number: US-NOVOPROD-1574564

PATIENT
  Age: 72 Year
  Sex: Female

DRUGS (2)
  1. OZEMPIC [Suspect]
     Active Substance: SEMAGLUTIDE
     Dosage: 0.5 MG, QW
     Route: 058
     Dates: start: 2025
  2. OZEMPIC [Suspect]
     Active Substance: SEMAGLUTIDE
     Indication: Type 2 diabetes mellitus
     Dosage: 0.25 MG, QW
     Route: 058
     Dates: start: 2024, end: 2025

REACTIONS (2)
  - Eye haemorrhage [Not Recovered/Not Resolved]
  - Eye swelling [Not Recovered/Not Resolved]

NARRATIVE: CASE EVENT DATE: 20250711
